FAERS Safety Report 4347690-X (Version None)
Quarter: 2004Q2

REPORT INFORMATION
  Report Type: 
  Country: None (occurrence: None)
  Receive Date: 20040427
  Receipt Date: 20040420
  Transmission Date: 20050107
  Serious: Yes (Death)
  Sender: FDA-Public Use
  Company Number: US-BRISTOL-MYERS SQUIBB COMPANY-12567384

PATIENT
  Age: 63 Year
  Sex: Female

DRUGS (1)
  1. TEQUIN [Suspect]

REACTIONS (1)
  - DEATH [None]
